FAERS Safety Report 7065332-X (Version None)
Quarter: 2010Q4

REPORT INFORMATION
  Report Type: 
  Country: None (occurrence: None)
  Receive Date: 20101022
  Receipt Date: 20101022
  Transmission Date: 20110411
  Serious: No
  Sender: FDA-Public Use
  Company Number: None

PATIENT
  Age: 76 Year
  Sex: Female

DRUGS (1)
  1. MORPHINE [Suspect]
     Indication: SPINAL ANAESTHESIA
     Dosage: 6MG MORPHINE IV
     Route: 042
     Dates: start: 20100922, end: 20100922

REACTIONS (2)
  - PRURITUS [None]
  - RASH ERYTHEMATOUS [None]
